FAERS Safety Report 6346712-4 (Version None)
Quarter: 2009Q3

REPORT INFORMATION
  Report Type: 
  Country: None (occurrence: None)
  Receive Date: 20090904
  Receipt Date: 20090828
  Transmission Date: 20100115
  Serious: Yes (Other)
  Sender: FDA-Public Use
  Company Number: 2009AL003772

PATIENT
  Age: 71 Year
  Sex: Male

DRUGS (3)
  1. AMLODIPINE BESYLATE [Suspect]
     Indication: HYPERTENSION
     Dosage: 15 MG; PO
     Route: 048
     Dates: start: 20080201
  2. RAMIPRIL [Concomitant]
  3. ASPIRIN [Concomitant]

REACTIONS (3)
  - INSOMNIA [None]
  - MEMORY IMPAIRMENT [None]
  - PRURITUS GENERALISED [None]
